FAERS Safety Report 4869218-8 (Version None)
Quarter: 2005Q4

REPORT INFORMATION
  Report Type: 
  Country: None (occurrence: None)
  Receive Date: 20051230
  Receipt Date: 20051201
  Transmission Date: 20060501
  Serious: Yes (Hospitalization)
  Sender: FDA-Public Use
  Company Number: PHHO2005JP19019

PATIENT
  Age: 64 Year
  Sex: Male

DRUGS (3)
  1. DIOVAN [Suspect]
     Indication: HYPERTENSION
     Dosage: 80 MG, UNK
     Route: 048
     Dates: start: 20030804, end: 20041206
  2. NIVADIL [Concomitant]
     Indication: HYPERTENSION
     Dosage: 8 MG
     Route: 048
     Dates: start: 19960401
  3. SERMION [Concomitant]
     Indication: CEREBRAL INFARCTION
     Dosage: 15 MG
     Route: 048
     Dates: start: 19960401

REACTIONS (3)
  - CEREBRAL HAEMORRHAGE [None]
  - DRUG INEFFECTIVE [None]
  - HEMIPLEGIA [None]
